FAERS Safety Report 5116935-0 (Version None)
Quarter: 2006Q3

REPORT INFORMATION
  Report Type: 
  Country: None (occurrence: None)
  Receive Date: 20060925
  Receipt Date: 20060906
  Transmission Date: 20061208
  Serious: Yes (Disabling)
  Sender: FDA-Public Use
  Company Number: S06-UKI-03791-01

PATIENT
  Age: 39 Year
  Sex: Male
  Weight: 75 kg

DRUGS (8)
  1. ESCITALOPRAM OXALATE [Suspect]
     Indication: ANXIETY
     Dosage: 10 MG QD PO
     Route: 048
     Dates: start: 20051101, end: 20060725
  2. ESCITALOPRAM OXALATE [Suspect]
     Indication: DEPRESSION
     Dosage: 10 MG QD PO
     Route: 048
     Dates: start: 20051101, end: 20060725
  3. ESCITALOPRAM OXALATE [Suspect]
     Indication: ANXIETY
     Dosage: 7.5 MG QD PO
     Route: 048
     Dates: start: 20060725, end: 20060730
  4. ESCITALOPRAM OXALATE [Suspect]
     Indication: DEPRESSION
     Dosage: 7.5 MG QD PO
     Route: 048
     Dates: start: 20060725, end: 20060730
  5. ESCITALOPRAM OXALATE [Suspect]
     Indication: ANXIETY
     Dosage: 5 MG QD PO
     Route: 048
     Dates: start: 20060730, end: 20060824
  6. ESCITALOPRAM OXALATE [Suspect]
     Indication: DEPRESSION
     Dosage: 5 MG QD PO
     Route: 048
     Dates: start: 20060730, end: 20060824
  7. CITALOPRAM HYDROBROMIDE [Concomitant]
  8. BECLOMETHASONE DIPROPIONATE [Concomitant]

REACTIONS (5)
  - ACCIDENT [None]
  - AGITATION [None]
  - MYOCLONUS [None]
  - NAUSEA [None]
  - TREMOR [None]
